FAERS Safety Report 7547714-2 (Version None)
Quarter: 2011Q2

REPORT INFORMATION
  Report Type: 
  Country: None (occurrence: None)
  Receive Date: 20110614
  Receipt Date: 20110504
  Transmission Date: 20111010
  Serious: No
  Sender: FDA-Public Use
  Company Number: US-BAYER-2011-040212

PATIENT
  Age: 91 Year
  Sex: Female
  Weight: 66 kg

DRUGS (3)
  1. ATENOLOL [Concomitant]
  2. ALEVE (CAPLET) [Suspect]
     Indication: ANALGESIC THERAPY
     Dosage: 220 MG, QD
     Dates: start: 20110504
  3. SELEGILINE [Concomitant]

REACTIONS (1)
  - DIARRHOEA [None]
